FAERS Safety Report 19583818 (Version 2)
Quarter: 2021Q3

REPORT INFORMATION
  Report Type: Report from Study
  Country: MX (occurrence: MX)
  Receive Date: 20210720
  Receipt Date: 20210805
  Transmission Date: 20211014
  Serious: Yes (Other)
  Sender: FDA-Public Use
  Company Number: NVSC2021MX159587

PATIENT
  Age: 66 Year
  Sex: Female
  Weight: 60 kg

DRUGS (2)
  1. IMATINIB. [Suspect]
     Active Substance: IMATINIB MESYLATE
     Indication: CHRONIC MYELOID LEUKAEMIA
     Dosage: 400 MG, QD
     Route: 048
     Dates: start: 20200917, end: 202105
  2. IMATINIB. [Suspect]
     Active Substance: IMATINIB MESYLATE
     Dosage: 200 MG, QD
     Route: 065
     Dates: start: 202105

REACTIONS (10)
  - Pruritus [Recovering/Resolving]
  - Aortic disorder [Unknown]
  - Acne [Recovering/Resolving]
  - Abdominal pain [Unknown]
  - Abdominal discomfort [Recovered/Resolved]
  - Skin discolouration [Recovering/Resolving]
  - Hypertension [Unknown]
  - Blister [Recovering/Resolving]
  - Dry skin [Recovering/Resolving]
  - Tinnitus [Unknown]

NARRATIVE: CASE EVENT DATE: 202009
